FAERS Safety Report 7996966 (Version 3)
Quarter: 2014Q4

REPORT INFORMATION
  Report Type: Spontaneous
  Country: US (occurrence: US)
  Receive Date: 20110618
  Receipt Date: 20141231
  Transmission Date: 20150529
  Serious: Yes (Life-Threatening, Hospitalization, Disabling, Other)
  Sender: FDA-Public Use
  Company Number: US-BAYER-2011-051113

PATIENT
  Age: 48 Year
  Sex: Female
  Weight: 73.92 kg

DRUGS (4)
  1. YAZ [Suspect]
     Active Substance: DROSPIRENONE\ETHINYL ESTRADIOL
     Indication: MENORRHAGIA
     Dosage: UNK
     Route: 048
     Dates: start: 20090512, end: 20090524
  2. NORETHINDRONE. [Concomitant]
     Active Substance: NORETHINDRONE
  3. PROQUIN [Concomitant]
     Dosage: UNK
     Dates: start: 200905
  4. YAZ [Suspect]
     Active Substance: DROSPIRENONE\ETHINYL ESTRADIOL
     Indication: MENORRHAGIA

REACTIONS (26)
  - General physical health deterioration [None]
  - Confusional state [None]
  - Musculoskeletal disorder [None]
  - VIIth nerve paralysis [None]
  - Pain [None]
  - Cerebellar infarction [None]
  - Cognitive disorder [None]
  - Feeling abnormal [None]
  - Asthenia [None]
  - Verbigeration [None]
  - Monoplegia [None]
  - Paralysis [None]
  - Hemiparesis [None]
  - Aggression [None]
  - Dysfunctional uterine bleeding [None]
  - Cerebrovascular accident [None]
  - Aphasia [None]
  - Joint dislocation [None]
  - Anxiety [None]
  - Speech disorder [None]
  - Depressed level of consciousness [None]
  - Emotional distress [None]
  - Hypoaesthesia [None]
  - Dysphagia [None]
  - Cerebral infarction [None]
  - Injury [None]

NARRATIVE: CASE EVENT DATE: 200905
